FAERS Safety Report 13272545 (Version 1)
Quarter: 2017Q1

REPORT INFORMATION
  Report Type: Spontaneous
  Country: US (occurrence: US)
  Receive Date: 20170226
  Receipt Date: 20170226
  Transmission Date: 20170428
  Serious: Yes (Hospitalization)
  Sender: FDA-Public Use
  Company Number: None

PATIENT
  Age: 53 Year
  Sex: Female
  Weight: 72 kg

DRUGS (1)
  1. SUBOXONE [Suspect]
     Active Substance: BUPRENORPHINE HYDROCHLORIDE\NALOXONE HYDROCHLORIDE
     Indication: PAIN
     Route: 048
     Dates: start: 20081212, end: 20081217

REACTIONS (5)
  - Depression [None]
  - Confusional state [None]
  - Anxiety [None]
  - Disorientation [None]
  - Suicidal ideation [None]

NARRATIVE: CASE EVENT DATE: 20081217
